FAERS Safety Report 7378152-3 (Version None)
Quarter: 2011Q1

REPORT INFORMATION
  Report Type: 
  Country: None (occurrence: None)
  Receive Date: 20110317
  Receipt Date: 20110308
  Transmission Date: 20110831
  Serious: Yes (Hospitalization)
  Sender: FDA-Public Use
  Company Number: UTC-005627

PATIENT
  Age: 74 Year
  Sex: Female

DRUGS (2)
  1. REMODULIN [Suspect]
     Dosage: 76.176 UG/KG (0.0529 UG/KG,1 IN 1 MIN),INTRAVENOUS
     Route: 042
  2. REVATIO [Concomitant]

REACTIONS (2)
  - INFUSION SITE REACTION [None]
  - VAGINAL INFECTION [None]
